FAERS Safety Report 24027736 (Version 1)
Quarter: 2024Q2

REPORT INFORMATION
  Report Type: Spontaneous
  Country: FR (occurrence: FR)
  Receive Date: 20240628
  Receipt Date: 20240628
  Transmission Date: 20240715
  Serious: Yes (Hospitalization, Other)
  Sender: FDA-Public Use
  Company Number: FR-AFSSAPS-AVCN2024000464

PATIENT
  Age: 55 Year
  Sex: Female

DRUGS (9)
  1. DIAZEPAM [Suspect]
     Active Substance: DIAZEPAM
     Indication: Product used for unknown indication
     Dosage: 300 MILLIGRAM, ONCE A DAY
     Route: 048
  2. PRAZEPAM [Suspect]
     Active Substance: PRAZEPAM
     Indication: Product used for unknown indication
     Dosage: SOMETIMES UP TO 50 TO 60 MG/ D
     Route: 048
  3. ALCOHOL [Suspect]
     Active Substance: ALCOHOL
     Indication: Product used for unknown indication
     Dosage: 2 OR 3 TIMES PER WEEK, 7 U/ D
     Route: 048
     Dates: start: 1981
  4. CANNABIS SATIVA SUBSP. INDICA TOP [Suspect]
     Active Substance: CANNABIS SATIVA SUBSP. INDICA TOP
     Indication: Product used for unknown indication
     Dosage: 10 JOINTS/DAY
     Dates: start: 1981
  5. COCAINE [Suspect]
     Active Substance: COCAINE
     Indication: Product used for unknown indication
     Dosage: OCCASIONAL
     Route: 042
     Dates: start: 1987, end: 2022
  6. COCAINE [Suspect]
     Active Substance: COCAINE
     Dosage: OCCASIONAL
     Route: 045
     Dates: start: 1987, end: 2022
  7. COCAINE [Suspect]
     Active Substance: COCAINE
     Dosage: BETWEEN 3 AND 5 G/D
     Dates: start: 2022
  8. HEROIN [Suspect]
     Active Substance: DIAMORPHINE
     Indication: Product used for unknown indication
     Dosage: CURRENTLY OCASSIONAL IN THE FORM OF SPEEDBALL
     Route: 065
     Dates: start: 1981
  9. TOBACCO LEAF [Suspect]
     Active Substance: TOBACCO LEAF
     Indication: Product used for unknown indication
     Dosage: 5 CIGS /D IN ADDITIONAL TO JOINTS
     Dates: start: 1981

REACTIONS (2)
  - Drug abuse [Recovering/Resolving]
  - Withdrawal syndrome [Recovered/Resolved]

NARRATIVE: CASE EVENT DATE: 19810101
